FAERS Safety Report 6632240-5 (Version None)
Quarter: 2010Q1

REPORT INFORMATION
  Report Type: 
  Country: None (occurrence: None)
  Receive Date: 20100312
  Receipt Date: 20100309
  Transmission Date: 20100710
  Serious: Yes (Hospitalization, Other)
  Sender: FDA-Public Use
  Company Number: GB-CVT-100140

PATIENT

DRUGS (12)
  1. RANEXA [Suspect]
     Indication: MYOCARDIAL ISCHAEMIA
     Dosage: 375 MG, UNKNOWN
     Route: 048
     Dates: start: 20091014, end: 20091212
  2. BUMETANIDE [Concomitant]
     Indication: MYOCARDIAL ISCHAEMIA
  3. LISINOPRIL                         /00894001/ [Concomitant]
  4. ASPIRIN [Concomitant]
  5. ATENOLOL [Concomitant]
  6. BISOPROLOL                         /00802601/ [Concomitant]
  7. ISOSORBIDE MONONITRATE [Concomitant]
  8. OMEPRAZOLE [Concomitant]
  9. INSULIN                            /00030501/ [Concomitant]
  10. QUININE SULFATE [Concomitant]
  11. FERROUS SULFATE TAB [Concomitant]
  12. CALCICHEW D3 [Concomitant]

REACTIONS (4)
  - DEHYDRATION [None]
  - MALAISE [None]
  - NAUSEA [None]
  - VOMITING [None]
